FAERS Safety Report 4315462-8 (Version None)
Quarter: 2004Q1

REPORT INFORMATION
  Report Type: 
  Country: None (occurrence: None)
  Receive Date: 20040310
  Receipt Date: 20040224
  Transmission Date: 20041129
  Serious: Yes (Death)
  Sender: FDA-Public Use
  Company Number: US-JNJFOC-20040205212

PATIENT
  Age: 64 Year
  Sex: Male

DRUGS (12)
  1. DURAGESIC [Suspect]
     Indication: CANCER PAIN
     Dosage: 75 UG/HR, TRANSDERMAL
     Route: 062
     Dates: start: 20040108, end: 20040203
  2. PREDNISONE [Concomitant]
  3. LASIX [Concomitant]
  4. AMARYL [Concomitant]
  5. INSULIN [Concomitant]
  6. POTASSIUM CHLORIDE [Concomitant]
  7. NEXIUM [Concomitant]
  8. DIGOXIN [Concomitant]
  9. AUGMENTIN [Concomitant]
  10. COLACE (DOCUSATE SODIUM) [Concomitant]
  11. MILK OF MAGNESIA (MAGNESIUM HYDROXIDE) [Concomitant]
  12. DILAUDID [Concomitant]

REACTIONS (14)
  - ABDOMINAL PAIN [None]
  - ABDOMINAL PAIN UPPER [None]
  - AGITATION [None]
  - ASPHYXIA [None]
  - DISORIENTATION [None]
  - FEELING ABNORMAL [None]
  - HYPERHIDROSIS [None]
  - INCOHERENT [None]
  - NAUSEA [None]
  - PHARMACEUTICAL PRODUCT COMPLAINT [None]
  - PULMONARY OEDEMA [None]
  - SOMNOLENCE [None]
  - TREMOR [None]
  - VOMITING [None]
